FAERS Safety Report 6477689-9 (Version None)
Quarter: 2009Q4

REPORT INFORMATION
  Report Type: 
  Country: None (occurrence: None)
  Receive Date: 20091207
  Receipt Date: 20091207
  Transmission Date: 20100525
  Serious: Yes (Other)
  Sender: FDA-Public Use
  Company Number: US-PFIZER INC-2009289730

PATIENT
  Sex: Female
  Weight: 58.957 kg

DRUGS (8)
  1. LIPITOR [Suspect]
     Dosage: UNKNOWN
  2. LYRICA [Suspect]
     Indication: NERVE INJURY
     Dosage: UNKNOWN
     Dates: start: 20091020
  3. DARVOCET-N 100 [Concomitant]
     Indication: BACK PAIN
     Dosage: UNIT DOSE: 100;
  4. VALIUM [Concomitant]
     Dosage: 5 MG, UNK
  5. COLESTIPOL HYDROCHLORIDE [Concomitant]
     Dosage: 1 G, UNK
  6. COMBIGAN [Concomitant]
     Indication: GLAUCOMA
     Dosage: FREQUENCY: 2X/DAY,
     Route: 047
  7. FISH OIL [Concomitant]
     Dosage: UNK
  8. CALCIUM [Concomitant]

REACTIONS (7)
  - DIZZINESS [None]
  - FEELING ABNORMAL [None]
  - MUSCLE INJURY [None]
  - MYALGIA [None]
  - RENAL FAILURE [None]
  - TONGUE DRY [None]
  - VISION BLURRED [None]
